FAERS Safety Report 8887220 (Version 1)
Quarter: 2012Q4

REPORT INFORMATION
  Report Type: 
  Country: CO (occurrence: CO)
  Receive Date: 20121105
  Receipt Date: 20121105
  Transmission Date: 20130627
  Serious: Yes (Other)
  Sender: FDA-Public Use
  Company Number: CO-PFIZER INC-2012270823

PATIENT
  Age: 16 Year
  Sex: Female

DRUGS (3)
  1. GENOTROPIN [Suspect]
     Indication: TURNER^S SYNDROME
     Dosage: 2.0 mg, 1x/day (except on Sundays)
     Route: 058
     Dates: start: 2008, end: 2011
  2. LEVOTHYROXINE [Concomitant]
     Indication: HYPOTHYROIDISM
     Dosage: 100 mg, 1x/day
     Route: 048
     Dates: start: 2004, end: 201202
  3. LEVOTHYROXINE [Concomitant]
     Dosage: one tablet of 100mg and one tablet of 50mg, 1x/day
     Route: 048
     Dates: start: 201202

REACTIONS (5)
  - Hypoacusis [Not Recovered/Not Resolved]
  - Cardiomyopathy [Unknown]
  - Bone density decreased [Not Recovered/Not Resolved]
  - Tooth demineralisation [Not Recovered/Not Resolved]
  - Genital disorder female [Recovered/Resolved]
